FAERS Safety Report 8840926 (Version 1)
Quarter: 2012Q4

REPORT INFORMATION
  Report Type: 
  Country: US (occurrence: US)
  Receive Date: 20121015
  Receipt Date: 20121015
  Transmission Date: 20130627
  Serious: Yes (Hospitalization)
  Sender: FDA-Public Use
  Company Number: US-ASTRAZENECA-2012SE76927

PATIENT
  Age: 62 Year
  Sex: Female

DRUGS (3)
  1. NEXIUM [Suspect]
     Route: 048
  2. OMEPRAZOLE [Suspect]
     Route: 048
  3. OTHER MEDICATIONS [Concomitant]

REACTIONS (3)
  - Blood pressure increased [Unknown]
  - Malaise [Unknown]
  - Drug dose omission [Unknown]
